FAERS Safety Report 5367771-1 (Version None)
Quarter: 2007Q2

REPORT INFORMATION
  Report Type: 
  Country: None (occurrence: None)
  Receive Date: 20070622
  Receipt Date: 20060615
  Transmission Date: 20071010
  Serious: Yes (Hospitalization, Other)
  Sender: FDA-Public Use
  Company Number: US-BRISTOL-MYERS SQUIBB COMPANY-13379839

PATIENT
  Age: 61 Year
  Sex: Male

DRUGS (2)
  1. MUTAMYCIN [Suspect]
     Indication: LEUKAEMIA
     Route: 042
     Dates: start: 20060512, end: 20060515
  2. ETOPOSIDE [Concomitant]

REACTIONS (2)
  - ACCIDENTAL OVERDOSE [None]
  - MEDICATION ERROR [None]
